FAERS Safety Report 9420057 (Version 2)
Quarter: 2013Q3

REPORT INFORMATION
  Report Type: Report from Study
  Country: US (occurrence: US)
  Receive Date: 20130725
  Receipt Date: 20130806
  Transmission Date: 20140515
  Serious: Yes (Hospitalization)
  Sender: FDA-Public Use
  Company Number: US-ASTRAZENECA-2013SE52757

PATIENT
  Age: 69 Year
  Sex: Male
  Weight: 131 kg

DRUGS (26)
  1. STUDY PROCEDURE [Suspect]
     Indication: ACUTE CORONARY SYNDROME
  2. BRILINTA [Suspect]
     Indication: ACUTE CORONARY SYNDROME
     Dosage: LOADING DOSE
     Route: 048
     Dates: start: 20130618, end: 20130618
  3. BRILINTA [Suspect]
     Indication: ACUTE CORONARY SYNDROME
     Route: 048
     Dates: start: 20130618, end: 20130618
  4. PLAVIX [Suspect]
     Indication: ACUTE CORONARY SYNDROME
     Route: 048
     Dates: start: 20130620
  5. ASPIRIN [Suspect]
     Indication: CORONARY ARTERY DISEASE
     Route: 048
  6. ASPIRIN [Suspect]
     Indication: ANTIPLATELET THERAPY
     Route: 048
  7. ASPIRIN [Suspect]
     Indication: CORONARY ARTERY DISEASE
     Route: 048
     Dates: start: 20130617, end: 20130617
  8. ASPIRIN [Suspect]
     Indication: ANTIPLATELET THERAPY
     Route: 048
     Dates: start: 20130617, end: 20130617
  9. PRASUGREL [Suspect]
     Indication: ANTIPLATELET THERAPY
     Route: 048
     Dates: start: 20130619, end: 20130620
  10. ALLOPURINAL [Concomitant]
     Route: 048
  11. ATENOLOL [Concomitant]
     Indication: HYPERTENSION
     Route: 048
  12. ATENOLOL [Concomitant]
     Indication: HYPERTENSION
     Route: 048
  13. CRESTOR [Concomitant]
     Indication: DYSLIPIDAEMIA
     Route: 048
  14. IMDUR [Concomitant]
     Indication: CORONARY ARTERY DISEASE
     Route: 048
  15. METFORMIN [Concomitant]
     Indication: TYPE 2 DIABETES MELLITUS
     Route: 048
  16. NIASPAN [Concomitant]
     Indication: DYSLIPIDAEMIA
     Route: 048
  17. NIASPAN [Concomitant]
     Indication: DYSLIPIDAEMIA
     Route: 048
  18. NORVASC [Concomitant]
     Indication: HYPERTENSION
     Route: 048
  19. TRICOR [Concomitant]
     Indication: DYSLIPIDAEMIA
     Route: 048
  20. RANEXA [Concomitant]
     Indication: CORONARY ARTERY DISEASE
     Route: 048
  21. MULTIVITAMIN [Concomitant]
     Indication: VITAMIN SUPPLEMENTATION
     Route: 048
  22. FOLGARD [Concomitant]
     Indication: VITAMIN SUPPLEMENTATION
     Route: 048
  23. COQ10 [Concomitant]
     Indication: ENZYME SUPPLEMENTATION
     Route: 048
  24. VITAMIN C [Concomitant]
     Indication: VITAMIN SUPPLEMENTATION
     Route: 048
  25. VITAMIN C [Concomitant]
     Indication: VITAMIN SUPPLEMENTATION
     Route: 048
  26. FISH OIL [Concomitant]
     Indication: DYSLIPIDAEMIA
     Route: 048

REACTIONS (1)
  - Duodenitis [Recovered/Resolved]
